FAERS Safety Report 8828793 (Version 1)
Quarter: 2012Q4

REPORT INFORMATION
  Report Type: 
  Country: US (occurrence: US)
  Receive Date: 20121009
  Receipt Date: 20121009
  Transmission Date: 20130627
  Serious: No
  Sender: FDA-Public Use
  Company Number: US-BAYER-2012-099773

PATIENT
  Sex: Male

DRUGS (1)
  1. AVELOX I.V. [Suspect]
     Route: 042

REACTIONS (2)
  - Pain [None]
  - Depression [None]
